FAERS Safety Report 19063114 (Version 2)
Quarter: 2022Q1

REPORT INFORMATION
  Report Type: Spontaneous
  Country: US (occurrence: US)
  Receive Date: 20210326
  Receipt Date: 20220314
  Transmission Date: 20220424
  Serious: Yes (Other)
  Sender: FDA-Public Use
  Company Number: US-GLAXOSMITHKLINE-US2021GSK069390

PATIENT
  Sex: Female

DRUGS (30)
  1. ZANTAC [Suspect]
     Active Substance: RANITIDINE HYDROCHLORIDE
     Indication: Gastrooesophageal reflux disease
     Dosage: 75 MG BOTH
     Route: 065
     Dates: start: 199501, end: 201906
  2. ZANTAC [Suspect]
     Active Substance: RANITIDINE HYDROCHLORIDE
     Dosage: 150 MG BOTH
     Route: 065
     Dates: start: 199501, end: 201906
  3. ZANTAC [Suspect]
     Active Substance: RANITIDINE HYDROCHLORIDE
     Dosage: 300 MG BOTH
     Route: 065
     Dates: start: 199501, end: 201906
  4. ZANTAC [Suspect]
     Active Substance: RANITIDINE HYDROCHLORIDE
     Dosage: 150 MG BOTH
     Route: 065
     Dates: start: 199501, end: 201906
  5. ZANTAC [Suspect]
     Active Substance: RANITIDINE HYDROCHLORIDE
     Dosage: 300 MG, QD
     Route: 065
     Dates: start: 199501, end: 201906
  6. RANITIDINE [Suspect]
     Active Substance: RANITIDINE
     Indication: Gastrooesophageal reflux disease
     Dosage: OCCASIONAL|75 MG|BOTH
     Route: 065
     Dates: start: 199708, end: 201906
  7. RANITIDINE [Suspect]
     Active Substance: RANITIDINE
     Dosage: OCCASIONAL|150 MG|BOTH
     Route: 065
     Dates: start: 199708, end: 201906
  8. RANITIDINE [Suspect]
     Active Substance: RANITIDINE
     Dosage: OCCASIONAL|300 MG|BOTH
     Route: 065
     Dates: start: 199708, end: 201906
  9. RANITIDINE [Suspect]
     Active Substance: RANITIDINE
     Dosage: OCCASIONAL|150 MG|BOTH
     Route: 065
     Dates: start: 199708, end: 201906
  10. RANITIDINE [Suspect]
     Active Substance: RANITIDINE
     Dosage: 300 MG
     Route: 065
     Dates: start: 199708, end: 201906
  11. RANITIDINE [Suspect]
     Active Substance: RANITIDINE
     Indication: Gastrooesophageal reflux disease
     Dosage: OCCASIONAL|75 MG|BOTH
     Route: 065
     Dates: start: 199708, end: 201906
  12. RANITIDINE [Suspect]
     Active Substance: RANITIDINE
     Dosage: OCCASIONAL|150 MG|BOTH
     Route: 065
     Dates: start: 199708, end: 201906
  13. RANITIDINE [Suspect]
     Active Substance: RANITIDINE
     Dosage: OCCASIONAL|300 MG|BOTH
     Route: 065
     Dates: start: 199708, end: 201906
  14. RANITIDINE [Suspect]
     Active Substance: RANITIDINE
     Dosage: OCCASIONAL|150 MG|BOTH
     Route: 065
     Dates: start: 199708, end: 201906
  15. RANITIDINE [Suspect]
     Active Substance: RANITIDINE
     Dosage: 300 MG
     Route: 065
     Dates: start: 199708, end: 201906
  16. ZANTAC [Suspect]
     Active Substance: RANITIDINE HYDROCHLORIDE
     Indication: Gastrooesophageal reflux disease
     Dosage: 75 MG, QD
     Route: 065
     Dates: start: 199501, end: 201906
  17. ZANTAC [Suspect]
     Active Substance: RANITIDINE HYDROCHLORIDE
     Dosage: 150 MG, QD
     Route: 065
     Dates: start: 199501, end: 201906
  18. ZANTAC [Suspect]
     Active Substance: RANITIDINE HYDROCHLORIDE
     Dosage: 300 MG, QD
     Route: 065
     Dates: start: 199501, end: 201906
  19. ZANTAC [Suspect]
     Active Substance: RANITIDINE HYDROCHLORIDE
     Dosage: UNK
  20. ZANTAC [Suspect]
     Active Substance: RANITIDINE HYDROCHLORIDE
     Dosage: UNK
  21. ZANTAC [Suspect]
     Active Substance: RANITIDINE HYDROCHLORIDE
     Indication: Gastrooesophageal reflux disease
     Dosage: 75 MG BOTH
     Route: 065
     Dates: start: 199501, end: 201906
  22. ZANTAC [Suspect]
     Active Substance: RANITIDINE HYDROCHLORIDE
     Dosage: 150 MG BOTH
     Route: 065
     Dates: start: 199501, end: 201906
  23. ZANTAC [Suspect]
     Active Substance: RANITIDINE HYDROCHLORIDE
     Dosage: 300 MG, QD
     Route: 065
     Dates: start: 199501, end: 201906
  24. ZANTAC [Suspect]
     Active Substance: RANITIDINE HYDROCHLORIDE
     Dosage: UNK
  25. ZANTAC [Suspect]
     Active Substance: RANITIDINE HYDROCHLORIDE
     Dosage: UNK
  26. ZANTAC [Suspect]
     Active Substance: RANITIDINE HYDROCHLORIDE
     Indication: Gastrooesophageal reflux disease
     Dosage: 75 MG BOTH
     Route: 065
     Dates: start: 199501, end: 201906
  27. ZANTAC [Suspect]
     Active Substance: RANITIDINE HYDROCHLORIDE
     Dosage: 150 MG BOTH
     Route: 065
     Dates: start: 199501, end: 201906
  28. ZANTAC [Suspect]
     Active Substance: RANITIDINE HYDROCHLORIDE
     Dosage: 300 MG, QD
     Route: 065
     Dates: start: 199501, end: 201906
  29. ZANTAC [Suspect]
     Active Substance: RANITIDINE HYDROCHLORIDE
     Dosage: UNK
  30. ZANTAC [Suspect]
     Active Substance: RANITIDINE HYDROCHLORIDE
     Dosage: UNK

REACTIONS (1)
  - Renal cancer [Unknown]
